FAERS Safety Report 5407117-3 (Version None)
Quarter: 2007Q3

REPORT INFORMATION
  Report Type: 
  Country: None (occurrence: None)
  Receive Date: 20070802
  Receipt Date: 20070530
  Transmission Date: 20080115
  Serious: Yes (Other)
  Sender: FDA-Public Use
  Company Number: 001#2#2007-00387

PATIENT
  Age: 63 Year
  Sex: Female

DRUGS (8)
  1. NEUPRO-8MG/24H (ROTIGOTINE) [Suspect]
     Indication: PARKINSON'S DISEASE
     Dosage: 8 MG/24H (8 MG/24H 1 IN 1 DAY(S)) TRANSDERMAL
     Route: 062
     Dates: start: 20070501, end: 20070524
  2. NACOM (CARBIDOPA, LEVODOPA) [Concomitant]
  3. RASAGILINE [Concomitant]
  4. MADOPAR (BENSERAZIDE HYDROCHLORIDE, LEVODOPA) [Concomitant]
  5. DOMPERIDONE (DOMPERIDONE) [Concomitant]
  6. QUETIAPINE FUMARATE [Concomitant]
  7. FOLIC ACID [Concomitant]
  8. DULOXETINE [Concomitant]

REACTIONS (6)
  - CONFUSIONAL STATE [None]
  - DIZZINESS [None]
  - FALL [None]
  - FATIGUE [None]
  - OEDEMA PERIPHERAL [None]
  - POSTURE ABNORMAL [None]
